FAERS Safety Report 13942000 (Version 1)
Quarter: 2017Q3

REPORT INFORMATION
  Report Type: Spontaneous
  Country: US (occurrence: US)
  Receive Date: 20170907
  Receipt Date: 20170907
  Transmission Date: 20171127
  Serious: No
  Sender: FDA-Public Use
  Company Number: US-LUNDBECK-DKLU2028321

PATIENT
  Sex: Male

DRUGS (4)
  1. NORTHERA [Suspect]
     Active Substance: DROXIDOPA
     Indication: AUTONOMIC NEUROPATHY
     Route: 048
     Dates: start: 20170119
  2. CELEXA TABLETS [Concomitant]
     Indication: DEPRESSION
     Route: 065
  3. CELEXA TABLETS [Concomitant]
     Indication: ANXIETY
  4. GABAPENTIN. [Concomitant]
     Active Substance: GABAPENTIN
     Indication: PRODUCT USED FOR UNKNOWN INDICATION
     Route: 065

REACTIONS (6)
  - Cyanosis [Unknown]
  - Anxiety [Unknown]
  - Depression [Unknown]
  - Neuropathy peripheral [Unknown]
  - Irritability [Unknown]
  - Condition aggravated [Unknown]
